FAERS Safety Report 20120245 (Version 1)
Quarter: 2021Q4

REPORT INFORMATION
  Report Type: Spontaneous
  Country: US (occurrence: None)
  Receive Date: 20211126
  Receipt Date: 20211126
  Transmission Date: 20220303
  Serious: Yes (Other)
  Sender: FDA-Public Use
  Company Number: None

PATIENT
  Age: 63 Year
  Sex: Male
  Weight: 130.05 kg

DRUGS (1)
  1. OLD SPICE SWEAT DEFENSE STRONGER SWAGGER DRY [Suspect]
     Active Substance: ALUMINUM CHLOROHYDRATE
     Indication: Personal hygiene
     Dosage: OTHER QUANTITY : 4 SPRAY(S);?FREQUENCY : DAILY;?
     Route: 061
     Dates: end: 20211125

REACTIONS (1)
  - Anaemia [None]

NARRATIVE: CASE EVENT DATE: 20191101
